FAERS Safety Report 13342775 (Version 1)
Quarter: 2017Q1

REPORT INFORMATION
  Report Type: Spontaneous
  Country: US (occurrence: US)
  Receive Date: 20170316
  Receipt Date: 20170316
  Transmission Date: 20170428
  Serious: Yes (Hospitalization, Other)
  Sender: FDA-Public Use
  Company Number: US-BELCHER PHARMACEUTICALS, LLC-2017VTS00602

PATIENT
  Sex: Female

DRUGS (1)
  1. HYOSCYAMINE SULFATE. [Suspect]
     Active Substance: HYOSCYAMINE SULFATE

REACTIONS (8)
  - Impaired healing [Unknown]
  - Dry mouth [Unknown]
  - Dehydration [Unknown]
  - Embolism [Unknown]
  - Surgery [Unknown]
  - Ischaemia [Unknown]
  - Hospitalisation [Unknown]
  - Malaise [Unknown]
